FAERS Safety Report 7371970-7 (Version None)
Quarter: 2011Q1

REPORT INFORMATION
  Report Type: 
  Country: None (occurrence: None)
  Receive Date: 20110314
  Receipt Date: 20110302
  Transmission Date: 20110831
  Serious: Yes (Death, Life-Threatening, Hospitalization)
  Sender: FDA-Public Use
  Company Number: 2010SP046427

PATIENT
  Age: 44 Year
  Sex: Female

DRUGS (6)
  1. GABAPENTIN [Concomitant]
  2. CLONAZEPAM [Concomitant]
  3. ZOLPIDEM TARTRATE [Concomitant]
  4. SAPHRIS [Suspect]
     Indication: SCHIZOAFFECTIVE DISORDER
     Dosage: 5 MG, BID, SL
     Route: 060
     Dates: start: 20091230, end: 20100822
  5. ZOLOFT [Concomitant]
  6. INVEGA [Concomitant]

REACTIONS (3)
  - CONTRAST MEDIA ALLERGY [None]
  - ANAPHYLACTIC SHOCK [None]
  - CHEST PAIN [None]
